FAERS Safety Report 22057785 (Version 2)
Quarter: 2023Q1

REPORT INFORMATION
  Report Type: Spontaneous
  Country: US (occurrence: US)
  Receive Date: 20230303
  Receipt Date: 20230306
  Transmission Date: 20230418
  Serious: No
  Sender: FDA-Public Use
  Company Number: US-BIOGEN-2021BI01070928

PATIENT
  Age: 57 Year
  Sex: Female

DRUGS (12)
  1. VUMERITY [Suspect]
     Active Substance: DIROXIMEL FUMARATE
     Indication: Multiple sclerosis
     Route: 050
     Dates: start: 20200610
  2. VUMERITY [Suspect]
     Active Substance: DIROXIMEL FUMARATE
     Route: 050
     Dates: start: 20211023
  3. VUMERITY [Suspect]
     Active Substance: DIROXIMEL FUMARATE
     Route: 050
  4. VUMERITY [Suspect]
     Active Substance: DIROXIMEL FUMARATE
     Route: 050
  5. VUMERITY [Suspect]
     Active Substance: DIROXIMEL FUMARATE
     Route: 050
  6. Fluticasone Spr [Concomitant]
     Route: 050
  7. ACETAMINOPHEN\HYDROCODONE [Concomitant]
     Active Substance: ACETAMINOPHEN\HYDROCODONE
     Route: 050
  8. SERTRALINE [Concomitant]
     Active Substance: SERTRALINE HYDROCHLORIDE
     Route: 050
  9. SOLIFENACIN [Concomitant]
     Active Substance: SOLIFENACIN
     Route: 050
  10. TIZANIDINE [Concomitant]
     Active Substance: TIZANIDINE
     Route: 050
  11. TRAZODONE [Concomitant]
     Active Substance: TRAZODONE HYDROCHLORIDE
     Route: 050
  12. AJOVY [Concomitant]
     Active Substance: FREMANEZUMAB-VFRM
     Indication: Product used for unknown indication
     Route: 050

REACTIONS (25)
  - Inappropriate schedule of product administration [Unknown]
  - Product dose omission issue [Unknown]
  - Balance disorder [Not Recovered/Not Resolved]
  - Bladder disorder [Not Recovered/Not Resolved]
  - Hemiparesis [Not Recovered/Not Resolved]
  - Depression [Unknown]
  - Fatigue [Not Recovered/Not Resolved]
  - Mobility decreased [Not Recovered/Not Resolved]
  - Dyspnoea [Unknown]
  - Sexual dysfunction [Unknown]
  - Musculoskeletal stiffness [Unknown]
  - Visual impairment [Unknown]
  - Headache [Unknown]
  - Hyperhidrosis [Unknown]
  - Paraesthesia [Unknown]
  - Micturition disorder [Unknown]
  - Cognitive disorder [Unknown]
  - Gastrointestinal disorder [Unknown]
  - Sleep disorder [Unknown]
  - Fall [Recovered/Resolved]
  - Gastric disorder [Recovered/Resolved]
  - Influenza [Not Recovered/Not Resolved]
  - Flushing [Not Recovered/Not Resolved]
  - Diarrhoea [Unknown]
  - Hypersensitivity [Unknown]

NARRATIVE: CASE EVENT DATE: 20211211
